FAERS Safety Report 8807163 (Version 3)
Quarter: 2013Q1

REPORT INFORMATION
  Report Type: Report from Study
  Country: BE (occurrence: BE)
  Receive Date: 20120925
  Receipt Date: 20130104
  Transmission Date: 20140127
  Serious: Yes (Hospitalization, Other)
  Sender: FDA-Public Use
  Company Number: BE-ABBOTT-12P-013-0983965-00

PATIENT
  Age: 20 Year
  Sex: Male

DRUGS (3)
  1. HUMIRA [Suspect]
     Indication: PRODUCT USED FOR UNKNOWN INDICATION
     Route: 058
     Dates: start: 20120615
  2. HUMIRA [Suspect]
     Route: 058
  3. UNKNOWN MEDICATION [Concomitant]
     Indication: PSYCHOTIC DISORDER

REACTIONS (2)
  - Intestinal perforation [Recovered/Resolved]
  - Intestinal perforation [Unknown]
